FAERS Safety Report 9752975 (Version 2)
Quarter: 2015Q2

REPORT INFORMATION
  Report Type: Spontaneous
  Country: JP (occurrence: JP)
  Receive Date: 20131213
  Receipt Date: 20150608
  Transmission Date: 20150821
  Serious: Yes (Death)
  Sender: FDA-Public Use
  Company Number: JP-SA-2013SA129508

PATIENT
  Age: 60 Year
  Sex: Female

DRUGS (6)
  1. RASBURICASE [Concomitant]
     Active Substance: RASBURICASE
     Dates: start: 20130329, end: 20130329
  2. ELPLAT [Suspect]
     Active Substance: OXALIPLATIN
     Indication: RECTAL CANCER
     Dosage: INFUSION
     Route: 041
     Dates: start: 20130323, end: 20130323
  3. 5-FU [Concomitant]
     Active Substance: FLUOROURACIL
     Route: 040
     Dates: start: 20130323, end: 20130323
  4. VECTIBIX [Concomitant]
     Active Substance: PANITUMUMAB
     Dosage: 310 MG/BODY
     Dates: start: 20130323, end: 20130323
  5. 5-FU [Concomitant]
     Active Substance: FLUOROURACIL
     Dosage: 3500 MG/BODY/D1-2 AS CONTINOUS INFUSION
     Dates: start: 20130323, end: 20130323
  6. CALCIUM LEVOFOLINATE [Concomitant]
     Active Substance: LEVOLEUCOVORIN CALCIUM
     Dates: start: 20130323, end: 20130323

REACTIONS (1)
  - Tumour lysis syndrome [Fatal]

NARRATIVE: CASE EVENT DATE: 20130328
